FAERS Safety Report 16197187 (Version 2)
Quarter: 2019Q2

REPORT INFORMATION
  Report Type: Spontaneous
  Country: US (occurrence: US)
  Receive Date: 20190415
  Receipt Date: 20190502
  Transmission Date: 20190711
  Serious: No
  Sender: FDA-Public Use
  Company Number: US-PFIZER INC-2019157756

PATIENT

DRUGS (6)
  1. DOCETAXEL. [Suspect]
     Active Substance: DOCETAXEL
     Dosage: UNK
     Dates: start: 201105, end: 201107
  2. DOCEFREZ [Suspect]
     Active Substance: DOCETAXEL ANHYDROUS
     Dosage: UNK
     Dates: start: 201105, end: 201107
  3. DOCEFREZ [Suspect]
     Active Substance: DOCETAXEL ANHYDROUS
     Dosage: UNK
     Dates: start: 201701, end: 201704
  4. TAXOTERE [Suspect]
     Active Substance: DOCETAXEL
     Dosage: UNK
     Dates: start: 201701, end: 201704
  5. DOCETAXEL. [Suspect]
     Active Substance: DOCETAXEL
     Dosage: UNK
     Dates: start: 201701, end: 201704
  6. TAXOTERE [Suspect]
     Active Substance: DOCETAXEL
     Dosage: UNK
     Dates: start: 201105, end: 201107

REACTIONS (1)
  - Alopecia [Unknown]
